FAERS Safety Report 15187395 (Version 1)
Quarter: 2018Q3

REPORT INFORMATION
  Report Type: Report from Study
  Country: US (occurrence: US)
  Receive Date: 20180723
  Receipt Date: 20180723
  Transmission Date: 20181010
  Serious: No
  Sender: FDA-Public Use
  Company Number: US-EXELIXIS-CABO-18012367

PATIENT
  Sex: Female

DRUGS (2)
  1. CABOMETYX [Suspect]
     Active Substance: CABOZANTINIB S-MALATE
     Indication: RENAL CANCER
     Dosage: 60 MG, QD
     Route: 048
     Dates: start: 20180124, end: 20180213
  2. CABOMETYX [Suspect]
     Active Substance: CABOZANTINIB S-MALATE
     Dosage: 60 MG, (2 DAYS ON AND 1 DAY OFF)
     Dates: start: 20180221

REACTIONS (17)
  - Malaise [Unknown]
  - Blister [Recovering/Resolving]
  - Vomiting [Unknown]
  - Nausea [Unknown]
  - Pain in extremity [Unknown]
  - Eructation [Unknown]
  - Decreased appetite [Unknown]
  - Hypothyroidism [Unknown]
  - Constipation [Unknown]
  - Anaemia [Unknown]
  - Cough [Recovering/Resolving]
  - Night sweats [Unknown]
  - Weight decreased [Unknown]
  - Skin exfoliation [Unknown]
  - Blood alkaline phosphatase increased [Unknown]
  - Dysgeusia [Unknown]
  - Skin ulcer [Recovering/Resolving]
